FAERS Safety Report 19350096 (Version 1)
Quarter: 2021Q2

REPORT INFORMATION
  Report Type: Spontaneous
  Country: US (occurrence: US)
  Receive Date: 20210531
  Receipt Date: 20210531
  Transmission Date: 20210717
  Serious: No
  Sender: FDA-Public Use
  Company Number: US-SA-2021SA175395

PATIENT
  Sex: Female

DRUGS (9)
  1. CALCIUM 600 + VITAMIN D [Concomitant]
     Active Substance: CALCIUM\VITAMIN D
  2. FOLIC ACID. [Concomitant]
     Active Substance: FOLIC ACID
  3. SYNTHROID [Concomitant]
     Active Substance: LEVOTHYROXINE SODIUM
  4. BIOTIN [Concomitant]
     Active Substance: BIOTIN
  5. DUPIXENT [Suspect]
     Active Substance: DUPILUMAB
     Indication: DERMATITIS ATOPIC
     Route: 058
  6. VITAMIN C [Concomitant]
     Active Substance: ASCORBIC ACID
  7. BREO ELLIPTA [Concomitant]
     Active Substance: FLUTICASONE FUROATE\VILANTEROL TRIFENATATE
  8. NIACIN. [Concomitant]
     Active Substance: NIACIN
  9. ALBUTEROL SULFATE. [Concomitant]
     Active Substance: ALBUTEROL SULFATE

REACTIONS (2)
  - Drug hypersensitivity [Unknown]
  - Eye disorder [Unknown]
